FAERS Safety Report 7583703-X (Version None)
Quarter: 2011Q2

REPORT INFORMATION
  Report Type: 
  Country: None (occurrence: None)
  Receive Date: 20110630
  Receipt Date: 20110622
  Transmission Date: 20111010
  Serious: Yes (Hospitalization)
  Sender: FDA-Public Use
  Company Number: B0727699A

PATIENT
  Sex: Female

DRUGS (14)
  1. SECTRAL [Concomitant]
     Dosage: 200MG PER DAY
     Dates: end: 20110424
  2. ZOCOR [Concomitant]
     Dates: end: 20110424
  3. PLAVIX [Concomitant]
  4. PERINDOPRIL ERBUMINE [Concomitant]
     Dosage: 5MG PER DAY
  5. OXYGEN [Concomitant]
     Dates: start: 20110424
  6. ROCEPHIN [Concomitant]
     Indication: BRONCHITIS
     Dates: start: 20110422, end: 20110424
  7. SOLU-MEDROL [Concomitant]
     Dosage: 80MG SINGLE DOSE
     Route: 042
     Dates: start: 20110424
  8. DIAMICRON [Concomitant]
     Dates: end: 20110424
  9. LASIX [Concomitant]
     Dosage: 60MG SINGLE DOSE
     Route: 042
     Dates: start: 20110424
  10. ASPIRIN [Concomitant]
  11. TERBUTALINE [Suspect]
     Route: 055
     Dates: start: 20110424, end: 20110428
  12. IPRATROPIUM BROMIDE [Suspect]
     Route: 055
     Dates: start: 20110424
  13. ALBUTEROL [Suspect]
     Dosage: 25MG PER DAY
     Route: 042
     Dates: start: 20110427, end: 20110428
  14. FENOFIBRIC ACID [Concomitant]
     Indication: BREAST NEOPLASM
     Dosage: 2.5MG PER DAY

REACTIONS (11)
  - ATRIAL FIBRILLATION [None]
  - CYANOSIS [None]
  - BRONCHOSPASM [None]
  - ORTHOPNOEA [None]
  - TACHYCARDIA [None]
  - RESPIRATORY DISTRESS [None]
  - ACUTE CORONARY SYNDROME [None]
  - TACHYPNOEA [None]
  - HYPERTENSIVE HEART DISEASE [None]
  - OXYGEN SATURATION DECREASED [None]
  - LEFT VENTRICULAR FAILURE [None]
